FAERS Safety Report 4385845-9 (Version None)
Quarter: 2004Q2

REPORT INFORMATION
  Report Type: 
  Country: None (occurrence: None)
  Receive Date: 20040622
  Receipt Date: 20040610
  Transmission Date: 20050107
  Serious: Yes (Hospitalization)
  Sender: FDA-Public Use
  Company Number: 04P-114-0263602-00

PATIENT
  Age: 44 Year
  Sex: Male

DRUGS (7)
  1. RITONAVIR [Suspect]
     Indication: HIV INFECTION
     Dosage: 100 MG, 1 IN 1 D, ORAL
     Route: 048
     Dates: start: 20031201
  2. ATAZANAVIR [Suspect]
     Indication: HIV INFECTION
     Dosage: 300 MG, 1 IN 1 D, ORAL
     Route: 048
     Dates: start: 20031201
  3. INVIRASE [Suspect]
     Dosage: 1600 MG, 1 IN 1 D
     Dates: start: 20040310, end: 20040325
  4. ENFUVIRTIDE [Concomitant]
  5. DIDANOSINE [Concomitant]
  6. TENOFOVIR [Concomitant]
  7. CIPROFIBRATE [Concomitant]

REACTIONS (4)
  - DRUG EFFECT DECREASED [None]
  - DRUG INTERACTION [None]
  - GENERAL PHYSICAL CONDITION ABNORMAL [None]
  - RENAL TUBULAR NECROSIS [None]
